FAERS Safety Report 11628583 (Version 1)
Quarter: 2015Q4

REPORT INFORMATION
  Report Type: Spontaneous
  Country: US (occurrence: None)
  Receive Date: 20151013
  Receipt Date: 20151013
  Transmission Date: 20160304
  Serious: No
  Sender: FDA-Public Use
  Company Number: None

PATIENT
  Age: 26 Year
  Sex: Male
  Weight: 113.4 kg

DRUGS (4)
  1. PROCAINE [Suspect]
     Active Substance: PROCAINE
     Dates: start: 20151007, end: 20151007
  2. FLUOXETINE [Concomitant]
     Active Substance: FLUOXETINE HYDROCHLORIDE
  3. OMEGA 3 WITH FISH OIL [Concomitant]
  4. MULTI VITAMIN [Concomitant]
     Active Substance: VITAMINS

REACTIONS (1)
  - Headache [None]

NARRATIVE: CASE EVENT DATE: 20151007
